FAERS Safety Report 9795127 (Version 1)
Quarter: 2014Q1

REPORT INFORMATION
  Report Type: Report from Study
  Country: US (occurrence: US)
  Receive Date: 20140103
  Receipt Date: 20140103
  Transmission Date: 20141002
  Serious: Yes (Other)
  Sender: FDA-Public Use
  Company Number: US-ROCHE-1326288

PATIENT
  Age: 15 Year
  Sex: Female

DRUGS (11)
  1. NAPROXEN [Suspect]
     Indication: MYALGIA
     Dosage: PRN
     Route: 048
  2. ALBUTEROL [Concomitant]
     Dosage: PRN
     Route: 055
  3. ALLEGRA [Concomitant]
     Dosage: FORM TABLET.
     Route: 065
  4. FLONASE [Concomitant]
     Route: 045
  5. IBUPROFEN [Concomitant]
     Indication: PAIN
     Dosage: PRN
     Route: 048
  6. SINGULAR [Concomitant]
     Dosage: HS
     Route: 048
  7. PANTOPRAZOLE [Concomitant]
     Route: 048
  8. PREDNISONE [Concomitant]
     Dosage: EVENING TAPPER
     Route: 048
     Dates: start: 20131213
  9. PREDNISONE [Concomitant]
     Route: 048
     Dates: start: 20131214
  10. PREDNISONE [Concomitant]
     Dosage: IN MORNING OF 19-20/DEC/2013
     Route: 048
  11. RANITIDINE [Concomitant]
     Route: 048

REACTIONS (11)
  - Vocal cord disorder [Unknown]
  - Vasomotor rhinitis [Unknown]
  - Asthenia [Unknown]
  - Myalgia [Unknown]
  - Nasal turbinate hypertrophy [Unknown]
  - Seasonal allergy [Unknown]
  - Pain [Unknown]
  - Cough [Unknown]
  - Osteochondrosis [Unknown]
  - Asthma [Unknown]
  - Musculoskeletal chest pain [Unknown]
